FAERS Safety Report 24136839 (Version 1)
Quarter: 2024Q3

REPORT INFORMATION
  Report Type: Spontaneous
  Country: US (occurrence: US)
  Receive Date: 20240725
  Receipt Date: 20240725
  Transmission Date: 20241016
  Serious: No
  Sender: HIKMA
  Company Number: US-HIKMA PHARMACEUTICALS USA INC.-US-H14001-23-64939

PATIENT
  Sex: Female

DRUGS (1)
  1. LORAZEPAM INTENSOL [Suspect]
     Active Substance: LORAZEPAM
     Indication: Mast cell activation syndrome
     Dosage: 5 MILLILITER, BID
     Route: 048
     Dates: start: 20230825

REACTIONS (5)
  - Dysphonia [Not Recovered/Not Resolved]
  - Dyspnoea [Recovered/Resolved]
  - Headache [Unknown]
  - Off label use [Not Recovered/Not Resolved]
  - Product storage error [Unknown]
